FAERS Safety Report 23529447 (Version 1)
Quarter: 2024Q1

REPORT INFORMATION
  Report Type: Spontaneous
  Country: GB (occurrence: GB)
  Receive Date: 20240216
  Receipt Date: 20240216
  Transmission Date: 20240410
  Serious: Yes (Hospitalization)
  Sender: FDA-Public Use
  Company Number: None

PATIENT
  Age: 81 Year
  Sex: Male

DRUGS (16)
  1. FUROSEMIDE [Suspect]
     Active Substance: FUROSEMIDE
     Indication: Product used for unknown indication
     Dosage: AT AN UNSPECIFIED DOSE ONCE DAILY (DOSAGE TEXT: UNK UNK, QD)
     Route: 065
  2. FUROSEMIDE [Suspect]
     Active Substance: FUROSEMIDE
     Indication: Product used for unknown indication
     Dosage: 40 MILLIGRAMS ONCE DAILY (DOSAGE TEXT: EACH MORNING)
     Route: 065
  3. BISOPROLOL [Suspect]
     Active Substance: BISOPROLOL\BISOPROLOL FUMARATE
     Indication: Product used for unknown indication
     Dosage: 2.5 MILLIGRAMS ONCE DAILY (DOSAGE TEXT: IN THE EVENING)
     Route: 065
  4. BISOPROLOL [Suspect]
     Active Substance: BISOPROLOL\BISOPROLOL FUMARATE
     Indication: Product used for unknown indication
     Dosage: AT AN UNSPECIFIED DOSE ONCE DAILY (DOSAGE TEXT: UNK UNK, QD)
     Route: 065
  5. CANDESARTAN [Suspect]
     Active Substance: CANDESARTAN
     Indication: Product used for unknown indication
     Dosage: 4 MILLIGRAMS ONCE DAILY
     Route: 065
  6. CANDESARTAN [Suspect]
     Active Substance: CANDESARTAN
     Indication: Product used for unknown indication
     Dosage: AT AN UNSPECIFIED DOSE ONCE DAILY (DOSAGE TEXT: UNK UNK, QD)
     Route: 065
  7. ATORVASTATIN [Concomitant]
     Active Substance: ATORVASTATIN
     Dosage: AT AN UNSPECIFIED DOSE ONCE DAILY (DOSAGE TEXT: UNK UNK, QD)
     Route: 065
  8. ATORVASTATIN [Concomitant]
     Active Substance: ATORVASTATIN
     Dosage: 20 MILLIGRAMS ONCE DAILY (DOSAGE TEXT: AT NIGHT)
     Route: 065
  9. EDOXABAN [Concomitant]
     Active Substance: EDOXABAN
     Dosage: AT AN UNSPECIFIED DOSE ONCE DAILY (DOSAGE TEXT: UNK UNK, QD)
     Route: 065
  10. EDOXABAN [Concomitant]
     Active Substance: EDOXABAN
     Dosage: 60 MILLIGRAMS ONCE DAILY
     Route: 065
  11. FERROUS SULFATE [Concomitant]
     Active Substance: FERROUS SULFATE
     Dosage: AT AN UNSPECIFIED DOSE ONCE DAILY (DOSAGE TEXT: UNK UNK, QD)
     Route: 065
  12. FERROUS SULFATE [Concomitant]
     Active Substance: FERROUS SULFATE
     Dosage: 200 MILLIGRAMS ONCE DAILY (DOSAGE TEXT: UNK UNK, QD)
     Route: 065
  13. ACETAMINOPHEN [Concomitant]
     Active Substance: ACETAMINOPHEN
     Dosage: 500 MILLIGRAMS AT AN UNSPECIFIED FREQUENCY (DOSAGE TEXT: ONE OR TWO TO BE TAKEN EVER 4-6 HOURS UP TO
     Route: 065
  14. ACETAMINOPHEN [Concomitant]
     Active Substance: ACETAMINOPHEN
     Dosage: AT AN UNSPECIFIED DOSE ONCE IN 25 DAYS (DOSAGE TEXT: UNK UNK, QD)
     Route: 065
  15. TRIMETHOPRIM [Concomitant]
     Active Substance: TRIMETHOPRIM
     Dosage: 100 MILLIGRAMS ONCE DAILY (DOSAGE TEXT: AT NIGHT)
     Route: 065
  16. TRIMETHOPRIM [Concomitant]
     Active Substance: TRIMETHOPRIM
     Dosage: AT AN UNSPECIFIED DOSE ONCE DAILY (DOSAGE TEXT: UNK UNK, QD)
     Route: 065

REACTIONS (2)
  - Hypotension [Recovered/Resolved]
  - Dizziness [Recovered/Resolved]
